FAERS Safety Report 6417321-3 (Version None)
Quarter: 2009Q4

REPORT INFORMATION
  Report Type: 
  Country: None (occurrence: None)
  Receive Date: 20091028
  Receipt Date: 20091020
  Transmission Date: 20100525
  Serious: Yes (Hospitalization)
  Sender: FDA-Public Use
  Company Number: PHHY2009NO38783

PATIENT
  Sex: Male

DRUGS (3)
  1. RITALIN [Suspect]
     Indication: ATTENTION DEFICIT/HYPERACTIVITY DISORDER
  2. METHYLPHENIDATE HCL [Suspect]
     Indication: ATTENTION DEFICIT/HYPERACTIVITY DISORDER
     Dosage: 36 MG DAILY
     Route: 048
     Dates: start: 20090501, end: 20090601
  3. CONCERTA [Suspect]
     Indication: ATTENTION DEFICIT/HYPERACTIVITY DISORDER
     Dosage: UNK
     Dates: start: 20090501, end: 20090601

REACTIONS (7)
  - ABDOMINAL DISCOMFORT [None]
  - ABDOMINAL PAIN UPPER [None]
  - CONDITION AGGRAVATED [None]
  - DUODENAL ULCER [None]
  - DUODENAL ULCER HAEMORRHAGE [None]
  - HAEMOGLOBIN DECREASED [None]
  - HYPONATRAEMIA [None]
